FAERS Safety Report 5738990-7 (Version None)
Quarter: 2008Q2

REPORT INFORMATION
  Report Type: 
  Country: None (occurrence: None)
  Receive Date: 20080515
  Receipt Date: 20080508
  Transmission Date: 20081010
  Serious: Yes (Other)
  Sender: FDA-Public Use
  Company Number: CH-ROCHE-563198

PATIENT
  Sex: Female

DRUGS (2)
  1. RIVOTRIL [Suspect]
     Indication: PHANTOM PAIN
     Dosage: DOSAGE REGIMEN REPORTED AS 1-2 TABLETS DAILY.
     Route: 048
  2. EFFEXOR [Concomitant]
     Indication: DEPRESSION
     Route: 048

REACTIONS (1)
  - COELIAC DISEASE [None]
